FAERS Safety Report 10365204 (Version 1)
Quarter: 2014Q1

REPORT INFORMATION
  Report Type: Spontaneous
  Country: US (occurrence: None)
  Receive Date: 20140306
  Receipt Date: 20140306
  Transmission Date: 20141002
  Serious: Yes (Other)
  Sender: FDA-Public Use
  Company Number: 163-21880-13091803

PATIENT
  Age: 59 Year
  Sex: Female

DRUGS (3)
  1. REVLIMID [Suspect]
     Indication: PLASMA CELL MYELOMA
     Dosage: 14 IN 21 D, PO
     Route: 048
     Dates: start: 20130819, end: 20130823
  2. VELCADE(BORTEZOMIB)(UNKNOWN) [Concomitant]
  3. BACTRIM DS(BACTRIM)(UNKNOWN) [Concomitant]

REACTIONS (2)
  - Tumour lysis syndrome [None]
  - Renal failure acute [None]
